FAERS Safety Report 24022529 (Version 4)
Quarter: 2024Q3

REPORT INFORMATION
  Report Type: Report from Study
  Country: CN (occurrence: CN)
  Receive Date: 20240627
  Receipt Date: 20240710
  Transmission Date: 20241017
  Serious: No
  Sender: ROCHE
  Company Number: CN-ROCHE-3307999

PATIENT
  Age: 62 Year
  Sex: Female
  Weight: 72.0 kg

DRUGS (9)
  1. ALECTINIB [Suspect]
     Active Substance: ALECTINIB
     Indication: Lung cancer metastatic
     Route: 048
     Dates: start: 20220107
  2. BICYCLOL [Concomitant]
     Active Substance: BICYCLOL
     Indication: Hepatic function abnormal
     Dosage: TO TREAT ABNORMAL LIVER FUNCTION
     Route: 048
     Dates: start: 20220912
  3. PHOSPHOLIPID [Concomitant]
     Active Substance: PHOSPHOLIPID
     Indication: Hepatic function abnormal
     Route: 048
     Dates: start: 20230427
  4. PHOSPHOLIPID [Concomitant]
     Active Substance: PHOSPHOLIPID
     Route: 048
     Dates: start: 20230516, end: 20230619
  5. PHOSPHOLIPID [Concomitant]
     Active Substance: PHOSPHOLIPID
     Route: 048
     Dates: start: 20230811, end: 20230908
  6. PHOSPHOLIPID [Concomitant]
     Active Substance: PHOSPHOLIPID
     Route: 048
     Dates: start: 20230909
  7. PHOSPHOLIPID [Concomitant]
     Active Substance: PHOSPHOLIPID
     Route: 048
     Dates: start: 20230620, end: 20230810
  8. SILYBIN [Concomitant]
     Indication: Hepatic function abnormal
     Route: 048
     Dates: start: 20230810, end: 20230910
  9. SILYBIN [Concomitant]
     Route: 048
     Dates: start: 20230911

REACTIONS (1)
  - Constipation [Not Recovered/Not Resolved]
